FAERS Safety Report 13553451 (Version 2)
Quarter: 2017Q2

REPORT INFORMATION
  Report Type: Report from Study
  Country: US (occurrence: US)
  Receive Date: 20170517
  Receipt Date: 20170531
  Transmission Date: 20170830
  Serious: Yes (Death, Other)
  Sender: FDA-Public Use
  Company Number: US-GILEAD-2017-0251568

PATIENT
  Age: 47 Year
  Sex: Female
  Weight: 87.75 kg

DRUGS (11)
  1. OMEPRAZOLE. [Concomitant]
     Active Substance: OMEPRAZOLE
  2. HYDROCODONE [Concomitant]
     Active Substance: HYDROCODONE
  3. MYCOPHENOLATE [Concomitant]
     Active Substance: MYCOPHENOLIC ACID
  4. AMBRISENTAN [Suspect]
     Active Substance: AMBRISENTAN
     Indication: PULMONARY HYPERTENSION
     Dosage: 10 MG, QD
     Route: 065
     Dates: start: 20160401
  5. FENTANYL. [Concomitant]
     Active Substance: FENTANYL
  6. LISINOPRIL. [Concomitant]
     Active Substance: LISINOPRIL
  7. AMBRISENTAN [Suspect]
     Active Substance: AMBRISENTAN
     Indication: SCLERODERMA
  8. ESTRADIOL. [Concomitant]
     Active Substance: ESTRADIOL
  9. SILDENAFIL. [Suspect]
     Active Substance: SILDENAFIL
     Indication: PRODUCT USED FOR UNKNOWN INDICATION
     Route: 065
  10. ONDANSETRON [Concomitant]
     Active Substance: ONDANSETRON
  11. GABAPENTIN. [Concomitant]
     Active Substance: GABAPENTIN

REACTIONS (1)
  - Scleroderma [Fatal]
